FAERS Safety Report 13414052 (Version 1)
Quarter: 2017Q2

REPORT INFORMATION
  Report Type: Spontaneous
  Country: DE (occurrence: DE)
  Receive Date: 20170407
  Receipt Date: 20170407
  Transmission Date: 20170830
  Serious: Yes (Hospitalization, Other)
  Sender: FDA-Public Use
  Company Number: PHHY2017DE050246

PATIENT
  Age: 72 Year
  Sex: Female

DRUGS (2)
  1. INSULIN [Concomitant]
     Active Substance: INSULIN NOS
     Indication: TYPE 2 DIABETES MELLITUS
     Route: 065
  2. AMLODIPINE [Suspect]
     Active Substance: AMLODIPINE BESYLATE
     Indication: HYPERTENSION
     Route: 065

REACTIONS (14)
  - Left ventricular hypertrophy [Unknown]
  - Glomerular filtration rate decreased [Unknown]
  - Dyspnoea [Unknown]
  - Heart rate irregular [Unknown]
  - Palpitations [Unknown]
  - Blood glucose increased [Unknown]
  - Atrial hypertrophy [Unknown]
  - Mitral valve incompetence [Unknown]
  - Atrial fibrillation [Unknown]
  - Blood creatinine increased [Unknown]
  - Cardiomegaly [Unknown]
  - Troponin T increased [Unknown]
  - Tachyarrhythmia [Unknown]
  - Pulmonary congestion [Unknown]
